FAERS Safety Report 10652691 (Version 2)
Quarter: 2020Q3

REPORT INFORMATION
  Report Type: Report from Study
  Country: US (occurrence: US)
  Receive Date: 20141215
  Receipt Date: 20141223
  Transmission Date: 20201105
  Serious: Yes (Other)
  Sender: FDA-Public Use
  Company Number: US-JNJFOC-20141207238

PATIENT
  Age: 66 Year
  Sex: Female
  Weight: 43.5 kg

DRUGS (25)
  1. TRAMADOL HYDROCHLORIDE. [Concomitant]
     Active Substance: TRAMADOL HYDROCHLORIDE
  2. LUNESTA [Concomitant]
     Active Substance: ESZOPICLONE
  3. SENNA [Concomitant]
     Active Substance: SENNA LEAF\SENNOSIDES\SENNOSIDES A AND B
  4. ACYCLOVIR. [Concomitant]
     Active Substance: ACYCLOVIR
  5. MIRALAX [Concomitant]
     Active Substance: POLYETHYLENE GLYCOL 3350
  6. IBRUTINIB [Suspect]
     Active Substance: IBRUTINIB
     Indication: DIFFUSE LARGE B-CELL LYMPHOMA
     Route: 048
     Dates: start: 20141018, end: 20141020
  7. ETOPOSIDE. [Suspect]
     Active Substance: ETOPOSIDE
     Indication: DIFFUSE LARGE B-CELL LYMPHOMA
     Dosage: CYCLE 1, DAY 2?4
     Route: 042
     Dates: start: 20141019, end: 20141114
  8. OMEPRAZOLE. [Concomitant]
     Active Substance: OMEPRAZOLE
  9. ALLOPURINOL. [Concomitant]
     Active Substance: ALLOPURINOL
  10. IFOSFAMIDE. [Suspect]
     Active Substance: IFOSFAMIDE
     Indication: DIFFUSE LARGE B-CELL LYMPHOMA
     Dosage: OVER 24 HRS IVCI, CYCLE 1, DAY 3
     Route: 042
     Dates: start: 20141020, end: 20141113
  11. COLACE [Concomitant]
     Active Substance: DOCUSATE SODIUM
  12. LEVOFLOXACIN. [Concomitant]
     Active Substance: LEVOFLOXACIN
  13. IBRUTINIB [Suspect]
     Active Substance: IBRUTINIB
     Route: 048
  14. CARBOPLATIN. [Suspect]
     Active Substance: CARBOPLATIN
     Indication: DIFFUSE LARGE B-CELL LYMPHOMA
     Dosage: 5 ACU
     Route: 042
     Dates: start: 20141020, end: 20141113
  15. CALCIUM AND VITAMIN D [Concomitant]
     Active Substance: CALCIUM\VITAMIN D
  16. XANAX [Concomitant]
     Active Substance: ALPRAZOLAM
  17. BUTALBITAL [Concomitant]
     Active Substance: BUTALBITAL
  18. RITUXIMAB. [Suspect]
     Active Substance: RITUXIMAB
     Indication: DIFFUSE LARGE B-CELL LYMPHOMA
     Dosage: CYCLE 1 DAY 1
     Route: 042
     Dates: start: 20141018, end: 20141111
  19. NEULASTA [Concomitant]
     Active Substance: PEGFILGRASTIM
  20. DELZICOL [Concomitant]
     Active Substance: MESALAMINE
  21. ALPRAZOLAM. [Concomitant]
     Active Substance: ALPRAZOLAM
  22. DEXAMETHASONE. [Concomitant]
     Active Substance: DEXAMETHASONE
  23. FOLATE [Concomitant]
     Active Substance: FOLATE SODIUM
  24. ONDANSETRON [Concomitant]
     Active Substance: ONDANSETRON
  25. OXYCODONE [Concomitant]
     Active Substance: OXYCODONE

REACTIONS (5)
  - Anaemia [Recovered/Resolved]
  - Lymphocyte count decreased [Recovered/Resolved]
  - Platelet count decreased [Recovering/Resolving]
  - Neutrophil count decreased [Recovered/Resolved]
  - White blood cell count decreased [Recovered/Resolved]

NARRATIVE: CASE EVENT DATE: 20141018
